FAERS Safety Report 16591597 (Version 1)
Quarter: 2019Q3

REPORT INFORMATION
  Report Type: Spontaneous
  Country: US (occurrence: US)
  Receive Date: 20190718
  Receipt Date: 20190718
  Transmission Date: 20191004
  Serious: Yes (Other)
  Sender: FDA-Public Use
  Company Number: US-PFIZER INC-2019301767

PATIENT
  Age: 15 Year
  Sex: Male
  Weight: 61.22 kg

DRUGS (1)
  1. GENOTROPIN [Suspect]
     Active Substance: SOMATROPIN
     Indication: GROWTH HORMONE DEFICIENCY
     Dosage: 2.4 MG, DAILY FOR 6 DAYS
     Route: 058

REACTIONS (2)
  - Tic [Unknown]
  - Autism spectrum disorder [Unknown]
